FAERS Safety Report 11916240 (Version 1)
Quarter: 2016Q1

REPORT INFORMATION
  Report Type: Report from Study
  Country: US (occurrence: US)
  Receive Date: 20160114
  Receipt Date: 20160114
  Transmission Date: 20160526
  Serious: Yes (Hospitalization)
  Sender: FDA-Public Use
  Company Number: US-ROCHE-1691468

PATIENT
  Sex: Female

DRUGS (10)
  1. TAFINLAR [Concomitant]
     Active Substance: DABRAFENIB MESYLATE
  2. KEYTRUDA [Concomitant]
     Active Substance: PEMBROLIZUMAB
  3. ZELBORAF [Suspect]
     Active Substance: VEMURAFENIB
     Indication: METASTATIC MALIGNANT MELANOMA
     Dosage: 3 IN THE MORNING AND 3 IN THE EVENING
     Route: 065
     Dates: start: 20151218, end: 20151227
  4. COTELLIC [Suspect]
     Active Substance: COBIMETINIB
     Indication: METASTATIC MALIGNANT MELANOMA
     Route: 065
     Dates: start: 20151218, end: 20151227
  5. ZELBORAF [Suspect]
     Active Substance: VEMURAFENIB
     Indication: METASTASIS
  6. PACLITAXEL. [Concomitant]
     Active Substance: PACLITAXEL
  7. COTELLIC [Suspect]
     Active Substance: COBIMETINIB
     Indication: METASTASIS
  8. YERVOY [Concomitant]
     Active Substance: IPILIMUMAB
  9. MEKINIST [Concomitant]
     Active Substance: TRAMETINIB DIMETHYL SULFOXIDE
  10. CARBOPLATIN. [Concomitant]
     Active Substance: CARBOPLATIN

REACTIONS (8)
  - Body temperature increased [Unknown]
  - Burning sensation [Unknown]
  - Rash generalised [Recovered/Resolved]
  - Diarrhoea [Unknown]
  - Hepatic enzyme increased [Unknown]
  - Candida infection [Not Recovered/Not Resolved]
  - Skin exfoliation [Not Recovered/Not Resolved]
  - Fatigue [Not Recovered/Not Resolved]
